FAERS Safety Report 17050279 (Version 1)
Quarter: 2019Q4

REPORT INFORMATION
  Report Type: Spontaneous
  Country: NL (occurrence: NL)
  Receive Date: 20191119
  Receipt Date: 20191119
  Transmission Date: 20200122
  Serious: Yes (Other)
  Sender: FDA-Public Use
  Company Number: NL-MYLANLABS-2019M1110632

PATIENT
  Age: 32 Year
  Sex: Male

DRUGS (3)
  1. VITAMIN D                          /00318501/ [Concomitant]
     Active Substance: CHOLECALCIFEROL
  2. CALCIUM [Concomitant]
     Active Substance: CALCIUM
  3. CINACALCET HYDROCHLORIDE. [Suspect]
     Active Substance: CINACALCET HYDROCHLORIDE
     Indication: HYPERPARATHYROIDISM TERTIARY
     Dosage: 90 MILLIGRAM, QD
     Route: 065

REACTIONS (5)
  - C-reactive protein increased [Unknown]
  - Blood albumin decreased [Unknown]
  - Off label use [Unknown]
  - Thyroiditis [Unknown]
  - Blood calcium decreased [Unknown]
